FAERS Safety Report 24756824 (Version 1)
Quarter: 2024Q4

REPORT INFORMATION
  Report Type: Spontaneous
  Country: US (occurrence: US)
  Receive Date: 20241220
  Receipt Date: 20241220
  Transmission Date: 20250115
  Serious: Yes (Hospitalization, Other)
  Sender: NOVITIUM PHARMA
  Company Number: US-NOVITIUMPHARMA-2024USNVP02882

PATIENT
  Age: 42 Year
  Sex: Male

DRUGS (2)
  1. PREDNISONE [Suspect]
     Active Substance: PREDNISONE
     Indication: Sarcoidosis
     Route: 048
  2. PREDNISONE [Suspect]
     Active Substance: PREDNISONE

REACTIONS (5)
  - Necrotising fasciitis [Unknown]
  - Sepsis [Unknown]
  - Cryptococcosis [Unknown]
  - Bacteraemia [Unknown]
  - Enterobacter infection [Unknown]
